FAERS Safety Report 5709974-X (Version None)
Quarter: 2008Q2

REPORT INFORMATION
  Report Type: 
  Country: None (occurrence: None)
  Receive Date: 20080418
  Receipt Date: 20070723
  Transmission Date: 20081010
  Serious: No
  Sender: FDA-Public Use
  Company Number: US-ASTRAZENECA-2007UW17782

PATIENT
  Age: 54 Year
  Sex: Female
  Weight: 86.2 kg

DRUGS (3)
  1. TOPROL-XL [Suspect]
     Indication: HEADACHE
     Route: 048
     Dates: start: 20050101, end: 20070718
  2. RELPAX [Concomitant]
  3. IMITREX [Concomitant]

REACTIONS (2)
  - DEPRESSION [None]
  - SEXUAL DYSFUNCTION [None]
